FAERS Safety Report 4372656-3 (Version None)
Quarter: 2004Q2

REPORT INFORMATION
  Report Type: 
  Country: None (occurrence: None)
  Receive Date: 20040526
  Receipt Date: 20040514
  Transmission Date: 20050107
  Serious: Yes (Hospitalization, Other)
  Sender: FDA-Public Use
  Company Number: 163-20785-03110289

PATIENT
  Age: 13 Year
  Sex: Female

DRUGS (11)
  1. THALOMID [Suspect]
     Indication: JUVENILE ARTHRITIS
     Dosage: 50 MG, Q.H.S., ORAL; 100 MG, Q.H.S., ORAL; 50 MG, Q.H.S., ORAL
     Route: 048
     Dates: start: 20031021, end: 20031103
  2. THALOMID [Suspect]
     Indication: JUVENILE ARTHRITIS
     Dosage: 50 MG, Q.H.S., ORAL; 100 MG, Q.H.S., ORAL; 50 MG, Q.H.S., ORAL
     Route: 048
     Dates: start: 20031104, end: 20031104
  3. THALOMID [Suspect]
     Indication: JUVENILE ARTHRITIS
     Dosage: 50 MG, Q.H.S., ORAL; 100 MG, Q.H.S., ORAL; 50 MG, Q.H.S., ORAL
     Route: 048
     Dates: start: 20031105
  4. NORVASC [Concomitant]
  5. PREDNISONE TAB [Concomitant]
  6. METHOTREXATE [Concomitant]
  7. PLAQUENIL [Concomitant]
  8. FOLIC ACID [Concomitant]
  9. METHADONE (METHADONE) [Concomitant]
  10. DILAUDID [Concomitant]
  11. GENOTROPIN [Concomitant]

REACTIONS (9)
  - ARNOLD-CHIARI MALFORMATION [None]
  - DISLOCATION OF VERTEBRA [None]
  - FATIGUE [None]
  - HEADACHE [None]
  - HYDROCEPHALUS [None]
  - OBSTRUCTION [None]
  - PAPILLOEDEMA [None]
  - SOMNOLENCE [None]
  - VISUAL DISTURBANCE [None]
